FAERS Safety Report 7436945-8 (Version None)
Quarter: 2011Q2

REPORT INFORMATION
  Report Type: 
  Country: None (occurrence: None)
  Receive Date: 20110426
  Receipt Date: 20110421
  Transmission Date: 20111010
  Serious: No
  Sender: FDA-Public Use
  Company Number: US-PFIZER INC-2011087298

PATIENT
  Sex: Female

DRUGS (8)
  1. ROBITUSSIN DM [Suspect]
     Dosage: UNK
  2. NASONEX [Suspect]
     Dosage: UNK
  3. TOBRAMYCIN [Suspect]
     Dosage: UNK
  4. DIMETAPP [Suspect]
     Dosage: UNK
  5. METFORMIN HCL [Suspect]
     Dosage: UNK
  6. XANAX [Suspect]
     Dosage: UNK
  7. AMITRIPTYLINE HCL [Suspect]
     Dosage: UNK
  8. GENTAMYCIN SULFATE [Suspect]
     Dosage: UNK

REACTIONS (4)
  - ERYTHEMA [None]
  - DRY SKIN [None]
  - HYPERSENSITIVITY [None]
  - DRY EYE [None]
